FAERS Safety Report 14947216 (Version 1)
Quarter: 2018Q2

REPORT INFORMATION
  Report Type: Spontaneous
  Country: US (occurrence: US)
  Receive Date: 20180529
  Receipt Date: 20180529
  Transmission Date: 20180711
  Serious: No
  Sender: FDA-Public Use
  Company Number: US-BEH-2018090936

PATIENT
  Age: 16 Year
  Sex: Male
  Weight: 63.49 kg

DRUGS (9)
  1. SODIUM CHLORIDE. [Concomitant]
     Active Substance: SODIUM CHLORIDE
  2. STERILE WATER [Concomitant]
     Active Substance: WATER
  3. RUCONEST [Concomitant]
     Active Substance: HUMAN C1-ESTERASE INHIBITOR
  4. EPINEPHRINE. [Concomitant]
     Active Substance: EPINEPHRINE
  5. HEPARIN [Concomitant]
     Active Substance: HEPARIN SODIUM
  6. HAEGARDA [Suspect]
     Active Substance: HUMAN C1-ESTERASE INHIBITOR
     Indication: PROPHYLAXIS
     Dosage: 4000 IU, TOT
     Route: 058
  7. CINRYZE [Concomitant]
     Active Substance: HUMAN C1-ESTERASE INHIBITOR
  8. HAEGARDA [Suspect]
     Active Substance: HUMAN C1-ESTERASE INHIBITOR
     Indication: HEREDITARY ANGIOEDEMA
     Dosage: 4000 IU, BIW
     Route: 058
     Dates: start: 20180419
  9. ALEVE [Concomitant]
     Active Substance: NAPROXEN SODIUM

REACTIONS (1)
  - Administration site pain [Unknown]

NARRATIVE: CASE EVENT DATE: 20180520
